FAERS Safety Report 23359732 (Version 1)
Quarter: 2024Q1

REPORT INFORMATION
  Report Type: Spontaneous
  Country: EG (occurrence: EG)
  Receive Date: 20240103
  Receipt Date: 20240103
  Transmission Date: 20240410
  Serious: Yes (Life-Threatening, Hospitalization, Other)
  Sender: FDA-Public Use
  Company Number: EG-HIKMA PHARMACEUTICALS-EG-H14001-23-68457

PATIENT
  Age: 30 Year
  Sex: Male
  Weight: 60 kg

DRUGS (3)
  1. DOXORUBICIN [Suspect]
     Active Substance: DOXORUBICIN
     Indication: Liposarcoma metastatic
     Dosage: 81MG, DAY 1 ONLY  EVERY  21   DAYS
     Route: 041
  2. IFOSFAMIDE [Suspect]
     Active Substance: IFOSFAMIDE
     Indication: Liposarcoma metastatic
     Dosage: 2.44G, DAY1,2,3  EVERY  21 DAYS
     Route: 041
  3. MESNA [Suspect]
     Active Substance: MESNA
     Indication: Liposarcoma metastatic
     Dosage: 1.46 GRAM, DAY 1,2,3  EVERY  21 DAYS
     Route: 041

REACTIONS (5)
  - Skin weeping [Unknown]
  - Cellulite [Unknown]
  - Dyspnoea [Unknown]
  - Bronchospasm [Unknown]
  - Tachycardia [Unknown]

NARRATIVE: CASE EVENT DATE: 20231122
